FAERS Safety Report 21915962 (Version 1)
Quarter: 2023Q1

REPORT INFORMATION
  Report Type: Spontaneous
  Country: FR (occurrence: FR)
  Receive Date: 20230126
  Receipt Date: 20230126
  Transmission Date: 20230417
  Serious: Yes (Hospitalization, Other)
  Sender: FDA-Public Use
  Company Number: None

PATIENT
  Age: 38 Year
  Sex: Male

DRUGS (1)
  1. XANAX [Suspect]
     Active Substance: ALPRAZOLAM
     Indication: Product used for unknown indication
     Dosage: 17 TABLETS/DAY THAT IS TO SAY 8.5 MG/D
     Route: 048

REACTIONS (2)
  - Delirium [Recovered/Resolved]
  - Drug dependence [Recovering/Resolving]
